FAERS Safety Report 18782501 (Version 1)
Quarter: 2021Q1

REPORT INFORMATION
  Report Type: Spontaneous
  Country: US (occurrence: US)
  Receive Date: 20210125
  Receipt Date: 20210125
  Transmission Date: 20210419
  Serious: No
  Sender: FDA-Public Use
  Company Number: US-ALLERGAN-2043111US

PATIENT
  Sex: Female

DRUGS (5)
  1. RESTASIS [Suspect]
     Active Substance: CYCLOSPORINE
     Indication: DRY EYE
     Dosage: UNK
     Route: 047
  2. EYE VITAMIN [Concomitant]
  3. BIOTIN [Concomitant]
     Active Substance: BIOTIN
  4. OTC BLINK DROPS [Concomitant]
     Indication: DRY EYE
  5. VITAMIN D [Concomitant]
     Active Substance: VITAMIN D NOS

REACTIONS (2)
  - Drug ineffective [Unknown]
  - Eye irritation [Recovered/Resolved]
